FAERS Safety Report 23716490 (Version 2)
Quarter: 2024Q2

REPORT INFORMATION
  Report Type: Spontaneous
  Country: JP (occurrence: JP)
  Receive Date: 20240408
  Receipt Date: 20240417
  Transmission Date: 20240716
  Serious: Yes (Hospitalization)
  Sender: FDA-Public Use
  Company Number: JP-GSKNCCC-Case-01948154_AE-81991

PATIENT

DRUGS (2)
  1. LAMICTAL [Suspect]
     Active Substance: LAMOTRIGINE
     Dosage: 1050 MG
  2. VALPROATE [Suspect]
     Active Substance: VALPROIC ACID
     Dosage: 13 G

REACTIONS (2)
  - Hospitalisation [Unknown]
  - Overdose [Unknown]
